FAERS Safety Report 5865963-6 (Version None)
Quarter: 2008Q3

REPORT INFORMATION
  Report Type: 
  Country: None (occurrence: None)
  Receive Date: 20080829
  Receipt Date: 20080820
  Transmission Date: 20090109
  Serious: Yes (Hospitalization)
  Sender: FDA-Public Use
  Company Number: CA-GENENTECH-264886

PATIENT
  Sex: Female

DRUGS (3)
  1. RITUXAN [Suspect]
     Indication: RHEUMATOID ARTHRITIS
     Dosage: UNK
     Route: 042
     Dates: start: 20060824, end: 20080612
  2. METHOTREXATE SODIUM [Suspect]
     Indication: RHEUMATOID ARTHRITIS
     Dosage: 25 MG, 1/WEEK
     Dates: start: 20000722, end: 20080702
  3. PREDNISONE TAB [Suspect]
     Indication: DRUG USE FOR UNKNOWN INDICATION
     Dosage: 20 MG, QD
     Dates: start: 20071211

REACTIONS (2)
  - NEUTROPENIC SEPSIS [None]
  - PNEUMONIA [None]
